FAERS Safety Report 5872974-3 (Version None)
Quarter: 2008Q3

REPORT INFORMATION
  Report Type: 
  Country: None (occurrence: None)
  Receive Date: 20080905
  Receipt Date: 20080901
  Transmission Date: 20090109
  Serious: Yes (Other)
  Sender: FDA-Public Use
  Company Number: JP-PFIZER INC-2008071987

PATIENT
  Age: 44 Year
  Sex: Male

DRUGS (4)
  1. SALAZOPYRIN [Suspect]
     Indication: COLITIS ULCERATIVE
     Route: 048
     Dates: start: 20080603, end: 20080617
  2. LAC B [Concomitant]
     Route: 048
  3. MESALAMINE [Concomitant]
     Route: 048
  4. PROCTOSEDYL ^ROUSSEL^ [Concomitant]
     Route: 054

REACTIONS (1)
  - PEMPHIGOID [None]
